FAERS Safety Report 23607742 (Version 1)
Quarter: 2024Q1

REPORT INFORMATION
  Report Type: Spontaneous
  Country: IT (occurrence: IT)
  Receive Date: 20240307
  Receipt Date: 20240307
  Transmission Date: 20240410
  Serious: Yes (Hospitalization)
  Sender: FDA-Public Use
  Company Number: None

PATIENT
  Age: 87 Year
  Sex: Female
  Weight: 60 kg

DRUGS (3)
  1. SOTALOL [Suspect]
     Active Substance: SOTALOL
     Indication: Intentional overdose
     Dosage: SOTALOLO
     Route: 048
     Dates: start: 20240128, end: 20240128
  2. ASPIRIN [Suspect]
     Active Substance: ASPIRIN
     Indication: Intentional overdose
     Route: 048
     Dates: start: 20240128, end: 20240128
  3. CETIRIZINE HYDROCHLORIDE [Suspect]
     Active Substance: CETIRIZINE HYDROCHLORIDE
     Indication: Intentional overdose
     Route: 048
     Dates: start: 20240128, end: 20240128

REACTIONS (3)
  - Somnolence [Not Recovered/Not Resolved]
  - Intentional overdose [Not Recovered/Not Resolved]
  - Sopor [Not Recovered/Not Resolved]

NARRATIVE: CASE EVENT DATE: 20240128
